FAERS Safety Report 21018078 (Version 1)
Quarter: 2022Q2

REPORT INFORMATION
  Report Type: Spontaneous
  Country: US (occurrence: None)
  Receive Date: 20220627
  Receipt Date: 20220627
  Transmission Date: 20220720
  Serious: Yes (Death)
  Sender: FDA-Public Use
  Company Number: None

PATIENT
  Age: 26 Year
  Sex: Male
  Weight: 202.3 kg

DRUGS (12)
  1. WELIREG [Suspect]
     Active Substance: BELZUTIFAN
     Indication: Renal cancer
     Dosage: FREQUENCY : DAILY;?
     Route: 048
     Dates: start: 202202
  2. VITAMIN D3 [Concomitant]
     Active Substance: CHOLECALCIFEROL
  3. VITAMIN B12 [Concomitant]
     Active Substance: CYANOCOBALAMIN
  4. MELATONIN [Concomitant]
     Active Substance: MELATONIN
  5. LORAZEPAM [Concomitant]
     Active Substance: LORAZEPAM
  6. DIAZEPAM [Concomitant]
  7. SERTRALINE [Concomitant]
  8. LORATADINE [Concomitant]
     Active Substance: LORATADINE
  9. ALLI [Concomitant]
     Active Substance: ORLISTAT
  10. ARANESP [Concomitant]
     Active Substance: DARBEPOETIN ALFA
  11. MULTIVITAMIN [Concomitant]
  12. AIRBORNE [Concomitant]
     Active Substance: HERBALS\MINERALS\VITAMINS

REACTIONS (1)
  - Death [None]
